FAERS Safety Report 6628823-9 (Version None)
Quarter: 2010Q1

REPORT INFORMATION
  Report Type: 
  Country: None (occurrence: None)
  Receive Date: 20100311
  Receipt Date: 20100304
  Transmission Date: 20100710
  Serious: Yes (Hospitalization, Other)
  Sender: FDA-Public Use
  Company Number: US-MERCK-0908USA03273

PATIENT
  Age: 74 Year
  Sex: Female

DRUGS (5)
  1. FOSAMAX [Suspect]
     Indication: OSTEOPOROSIS PROPHYLAXIS
     Route: 048
     Dates: start: 20050216, end: 20080101
  2. FOSAMAX [Suspect]
     Route: 048
     Dates: end: 20070901
  3. FOSAMAX [Suspect]
     Route: 048
     Dates: start: 20070112
  4. FOLIC ACID [Concomitant]
     Indication: RHEUMATOID ARTHRITIS
     Route: 065
     Dates: start: 20030501
  5. METHOTREXATE [Concomitant]
     Indication: RHEUMATOID ARTHRITIS
     Route: 065
     Dates: start: 20040701

REACTIONS (23)
  - AMNESIA [None]
  - BLOOD PRESSURE INCREASED [None]
  - BONE DENSITY DECREASED [None]
  - CARPAL TUNNEL SYNDROME [None]
  - CHRONIC OBSTRUCTIVE PULMONARY DISEASE [None]
  - COGNITIVE DISORDER [None]
  - CONTUSION [None]
  - DEMENTIA [None]
  - DENTAL CARIES [None]
  - DRUG INEFFECTIVE [None]
  - EDENTULOUS [None]
  - FIBULA FRACTURE [None]
  - GINGIVAL PAIN [None]
  - GINGIVITIS [None]
  - INAPPROPRIATE SCHEDULE OF DRUG ADMINISTRATION [None]
  - ORAL INFECTION [None]
  - OSTEOARTHRITIS [None]
  - OSTEONECROSIS [None]
  - OSTEOPENIA [None]
  - PERIODONTAL DISEASE [None]
  - POLYMYALGIA RHEUMATICA [None]
  - TIBIA FRACTURE [None]
  - UPPER RESPIRATORY TRACT INFECTION [None]
